FAERS Safety Report 5472943-1 (Version None)
Quarter: 2007Q4

REPORT INFORMATION
  Report Type: 
  Country: None (occurrence: None)
  Receive Date: 20071001
  Receipt Date: 20070314
  Transmission Date: 20080405
  Serious: No
  Sender: FDA-Public Use
  Company Number: US-ASTRAZENECA-2007UW00530

PATIENT
  Age: 59 Year
  Sex: Female
  Weight: 85.9 kg

DRUGS (5)
  1. ARIMIDEX [Suspect]
     Indication: BREAST CANCER
     Route: 048
     Dates: start: 20051031
  2. LIPITOR [Concomitant]
     Indication: BLOOD CHOLESTEROL
     Route: 048
  3. TOPROL-XL [Concomitant]
     Indication: BLOOD PRESSURE
     Route: 048
  4. ASPIRIN [Concomitant]
     Indication: OSTEOPOROSIS
     Route: 048
  5. TRENTAL [Concomitant]
     Route: 048
     Dates: start: 20051031

REACTIONS (4)
  - ABDOMINAL PAIN [None]
  - GROIN PAIN [None]
  - PAIN IN EXTREMITY [None]
  - SKIN DISORDER [None]
